FAERS Safety Report 5348863-X (Version None)
Quarter: 2007Q2

REPORT INFORMATION
  Report Type: 
  Country: None (occurrence: None)
  Receive Date: 20070607
  Receipt Date: 20070523
  Transmission Date: 20071010
  Serious: Yes (Hospitalization)
  Sender: FDA-Public Use
  Company Number: PHEH2007US06997

PATIENT
  Age: 65 Year
  Sex: Female
  Weight: 95.691 kg

DRUGS (12)
  1. ZELNORM [Suspect]
     Dosage: 6 MG, BID
     Route: 048
     Dates: start: 20060607
  2. PREVACID [Concomitant]
  3. NEXIUM [Concomitant]
     Dosage: 40 MG, BID
     Route: 048
  4. PREMARIN [Concomitant]
     Indication: MENOPAUSE
     Dosage: 1.25 MG, UNK
     Route: 048
  5. CELEBREX [Concomitant]
     Dosage: 200 MG, QD
     Route: 048
  6. ACETYLSALICYLIC ACID SRT [Concomitant]
     Dosage: 81 MG, QD
     Route: 048
  7. MAXZIDE [Concomitant]
     Dosage: 37/25, UNK
     Route: 048
  8. LEXAPRO [Concomitant]
     Dosage: 10 MG, QD
     Route: 048
     Dates: end: 20060523
  9. LEXAPRO [Concomitant]
     Dosage: 20 MG, QD
     Route: 048
     Dates: start: 20060523
  10. LEVOTHROID [Concomitant]
     Dosage: 0.05 MG, QD
     Route: 048
  11. ENABLEX [Concomitant]
     Dosage: 7.5 MG, UNK
     Route: 048
  12. LIPITOR [Concomitant]
     Dosage: 10 MG, QD
     Route: 048

REACTIONS (7)
  - ABDOMINAL PAIN UPPER [None]
  - ALANINE AMINOTRANSFERASE INCREASED [None]
  - ASPARTATE AMINOTRANSFERASE INCREASED [None]
  - CARDIAC DISORDER [None]
  - CHEST DISCOMFORT [None]
  - CHEST PAIN [None]
  - MYALGIA [None]
